FAERS Safety Report 12629189 (Version 1)
Quarter: 2016Q3

REPORT INFORMATION
  Report Type: Spontaneous
  Country: US (occurrence: None)
  Receive Date: 20160805
  Receipt Date: 20160805
  Transmission Date: 20161109
  Serious: Yes (Hospitalization)
  Sender: FDA-Public Use
  Company Number: None

PATIENT
  Age: 85 Year
  Sex: Male

DRUGS (4)
  1. XOFIGO [Suspect]
     Active Substance: RADIUM RA-223 DICHLORIDE
     Indication: PROSTATE CANCER
     Route: 042
     Dates: start: 20160719
  2. ENZALUTAMIDE [Suspect]
     Active Substance: ENZALUTAMIDE
     Indication: PROSTATE CANCER
     Route: 048
     Dates: start: 20160705
  3. ENZALUTAMIDE [Concomitant]
     Active Substance: ENZALUTAMIDE
  4. RADIUM RA-223 DICHLORIDE [Concomitant]
     Active Substance: RADIUM RA-223 DICHLORIDE

REACTIONS (2)
  - Urinary tract infection enterococcal [None]
  - Pneumonia [None]

NARRATIVE: CASE EVENT DATE: 20160723
